FAERS Safety Report 20424447 (Version 1)
Quarter: 2022Q1

REPORT INFORMATION
  Report Type: Spontaneous
  Country: CN (occurrence: CN)
  Receive Date: 20220203
  Receipt Date: 20220203
  Transmission Date: 20220423
  Serious: Yes (Death)
  Sender: FDA-Public Use
  Company Number: CN-EXELIXIS-CABO-21045376

PATIENT
  Age: 55 Year
  Sex: Female

DRUGS (1)
  1. CABOMETYX [Suspect]
     Active Substance: CABOZANTINIB S-MALATE
     Indication: Gallbladder cancer
     Dosage: UNK

REACTIONS (2)
  - Malignant neoplasm progression [Fatal]
  - Off label use [Unknown]
